FAERS Safety Report 5654428-2 (Version None)
Quarter: 2008Q1

REPORT INFORMATION
  Report Type: 
  Country: None (occurrence: None)
  Receive Date: 20080305
  Receipt Date: 20080228
  Transmission Date: 20080703
  Serious: Yes (Hospitalization)
  Sender: FDA-Public Use
  Company Number: 2008S1001373

PATIENT
  Age: 61 Year
  Sex: Female
  Weight: 73.0291 kg

DRUGS (1)
  1. PHOSPHOSODA GINGER LEMON [Suspect]
     Indication: OOPHORECTOMY
     Dosage: 45 ML;X1;PO
     Route: 048
     Dates: start: 20080228, end: 20080228

REACTIONS (5)
  - DEHYDRATION [None]
  - MALAISE [None]
  - NAUSEA [None]
  - STOMACH DISCOMFORT [None]
  - VOMITING [None]
